FAERS Safety Report 11786269 (Version 1)
Quarter: 2015Q4

REPORT INFORMATION
  Report Type: Spontaneous
  Country: US (occurrence: None)
  Receive Date: 20151125
  Receipt Date: 20151125
  Transmission Date: 20160305
  Serious: No
  Sender: FDA-Public Use
  Company Number: None

PATIENT
  Age: 84 Year
  Sex: Female

DRUGS (1)
  1. SIMPONI [Suspect]
     Active Substance: GOLIMUMAB
     Indication: RHEUMATOID ARTHRITIS
     Dosage: 50MG  ONCE A MONTH  SQ
     Route: 058
     Dates: start: 20150726

REACTIONS (2)
  - Arthritis [None]
  - Drug ineffective [None]

NARRATIVE: CASE EVENT DATE: 20151027
